FAERS Safety Report 4331891-0 (Version None)
Quarter: 2004Q2

REPORT INFORMATION
  Report Type: 
  Country: None (occurrence: None)
  Receive Date: 20040405
  Receipt Date: 20040225
  Transmission Date: 20050107
  Serious: No
  Sender: FDA-Public Use
  Company Number: US-GLAXOSMITHKLINE-A0499811A

PATIENT
  Age: 9 Year
  Sex: Male

DRUGS (1)
  1. FLOVENT [Suspect]
     Indication: ASTHMA
     Dosage: 88MCG TWICE PER DAY
     Route: 055
     Dates: start: 20030701

REACTIONS (2)
  - GROWTH RETARDATION [None]
  - WEIGHT INCREASED [None]
